FAERS Safety Report 7632636-9 (Version None)
Quarter: 2011Q3

REPORT INFORMATION
  Report Type: 
  Country: None (occurrence: None)
  Receive Date: 20110725
  Receipt Date: 20101105
  Transmission Date: 20111222
  Serious: No
  Sender: FDA-Public Use
  Company Number: US-BRISTOL-MYERS SQUIBB COMPANY-15369473

PATIENT
  Age: 46 Year
  Sex: Male
  Weight: 171 kg

DRUGS (4)
  1. SIMVASTATIN [Concomitant]
  2. LOPRESSOR [Concomitant]
  3. METOPROLOL TARTRATE [Concomitant]
  4. COUMADIN [Suspect]

REACTIONS (1)
  - OEDEMA [None]
